FAERS Safety Report 10882491 (Version 2)
Quarter: 2015Q2

REPORT INFORMATION
  Report Type: Report from Study
  Country: US (occurrence: US)
  Receive Date: 20150303
  Receipt Date: 20150428
  Transmission Date: 20150821
  Serious: Yes (Other)
  Sender: FDA-Public Use
  Company Number: US-ACTAVIS-2015-03865

PATIENT
  Age: 50 Year
  Sex: Female
  Weight: 79 kg

DRUGS (3)
  1. LETROZOLE (ATLLC) [Suspect]
     Active Substance: LETROZOLE
     Indication: BREAST CANCER
     Dosage: UNKNOWN DOSE, ONCE DAILY
     Route: 048
     Dates: start: 20131010
  2. PLACEBO [Suspect]
     Active Substance: UNSPECIFIED INGREDIENT
     Indication: BREAST CANCER
     Dosage: UNKNOWN DOSE, ONCE DAILY, CYCLICAL 3 WEEKS ON AND 1 WEEK OFF EVERY 28 DAYS
     Route: 065
     Dates: start: 20131010, end: 20150126
  3. INVESTIGATIONAL DRUG [Suspect]
     Active Substance: INVESTIGATIONAL PRODUCT
     Indication: BREAST CANCER
     Dosage: UNKNOWN DOSE, ONCE DAILY, CYCLICAL 3 WEEKS ON AND 1 WEEK OFF EVERY 28 DAYS
     Route: 065
     Dates: start: 20131010, end: 20150126

REACTIONS (1)
  - Atrial fibrillation [Recovered/Resolved]

NARRATIVE: CASE EVENT DATE: 20141218
